FAERS Safety Report 20415989 (Version 1)
Quarter: 2022Q1

REPORT INFORMATION
  Report Type: Spontaneous
  Country: US (occurrence: None)
  Receive Date: 20220201
  Receipt Date: 20220201
  Transmission Date: 20220423
  Serious: Yes (Other)
  Sender: FDA-Public Use
  Company Number: None

PATIENT
  Age: 84 Year
  Sex: Male

DRUGS (1)
  1. ERIVEDGE [Suspect]
     Active Substance: VISMODEGIB
     Dosage: FREQUENCY : DAILY;?
     Route: 048
     Dates: start: 20211029, end: 20220201

REACTIONS (2)
  - Muscle spasms [None]
  - Fall [None]

NARRATIVE: CASE EVENT DATE: 20220101
